FAERS Safety Report 6045000-3 (Version None)
Quarter: 2009Q1

REPORT INFORMATION
  Report Type: 
  Country: None (occurrence: None)
  Receive Date: 20090116
  Receipt Date: 20090116
  Transmission Date: 20090719
  Serious: Yes (Other)
  Sender: FDA-Public Use
  Company Number: None

PATIENT
  Sex: Female
  Weight: 94.8018 kg

DRUGS (1)
  1. LEVETIRACETAM [Suspect]
     Indication: CONVULSION
     Dosage: 500MG BID ORAL
     Route: 048
     Dates: start: 20081201, end: 20090101

REACTIONS (3)
  - AGGRESSION [None]
  - IRRITABILITY [None]
  - PRODUCT QUALITY ISSUE [None]
